FAERS Safety Report 20061863 (Version 1)
Quarter: 2021Q4

REPORT INFORMATION
  Report Type: Spontaneous
  Country: GR (occurrence: GR)
  Receive Date: 20211112
  Receipt Date: 20211112
  Transmission Date: 20220303
  Serious: Yes (Life-Threatening, Hospitalization, Other)
  Sender: FDA-Public Use
  Company Number: GR-LUPIN PHARMACEUTICALS INC.-2021-22056

PATIENT
  Age: 72 Year
  Sex: Female

DRUGS (6)
  1. AMLODIPINE [Suspect]
     Active Substance: AMLODIPINE BESYLATE
     Indication: Product used for unknown indication
     Dosage: 200 MILLIGRAM
     Route: 048
  2. CALCIUM ACETATE [Suspect]
     Active Substance: CALCIUM ACETATE
     Indication: Shock
     Dosage: UNK (10% CALCIUM CHLORIDE INFUSION AT 15 MG/HR INTRAVENOUS INFUSION)
     Route: 042
  3. SODIUM CHLORIDE [Suspect]
     Active Substance: SODIUM CHLORIDE
     Indication: Shock
     Dosage: UNK (2L OF NORMAL SALINE (11ML/KG/HR)
     Route: 042
  4. ACTIVATED CHARCOAL [Suspect]
     Active Substance: ACTIVATED CHARCOAL
     Indication: Shock
     Dosage: 60 GRAM (1 GR/KG)
     Route: 048
  5. NOREPINEPHRINE [Suspect]
     Active Substance: NOREPINEPHRINE
     Indication: Shock
     Dosage: UNK (1 MCG/KG/MIN)
     Route: 042
  6. NOREPINEPHRINE [Suspect]
     Active Substance: NOREPINEPHRINE
     Dosage: UNK (2.5 MCG/KG/MIN)
     Route: 042

REACTIONS (9)
  - Intentional overdose [Unknown]
  - Shock [Recovered/Resolved]
  - Acute pulmonary oedema [Recovered/Resolved]
  - Dyspnoea [Recovered/Resolved]
  - Mental impairment [Recovering/Resolving]
  - Toxicity to various agents [Recovered/Resolved]
  - Suicide attempt [Recovered/Resolved]
  - Drug ineffective for unapproved indication [Unknown]
  - Off label use [Unknown]
